FAERS Safety Report 9887585 (Version 2)
Quarter: 2014Q1

REPORT INFORMATION
  Report Type: Report from Study
  Country: JP (occurrence: JP)
  Receive Date: 20140211
  Receipt Date: 20140211
  Transmission Date: 20141002
  Serious: Yes (Death, Hospitalization, Other)
  Sender: FDA-Public Use
  Company Number: JP-CELGENEUS-087-21880-13041822

PATIENT
  Age: 71 Year
  Sex: Male
  Weight: 63 kg

DRUGS (16)
  1. REVLIMID [Suspect]
     Indication: MYELODYSPLASTIC SYNDROME
     Dosage: 5 MILLIGRAM
     Route: 048
     Dates: start: 20130322, end: 20130324
  2. VIDAZA [Suspect]
     Indication: MYELODYSPLASTIC SYNDROME
     Dosage: 100 MILLIGRAM
     Route: 041
     Dates: start: 20130122, end: 20130128
  3. VIDAZA [Suspect]
     Dosage: 100 MILLIGRAM
     Route: 041
     Dates: start: 20130225, end: 20130301
  4. VIDAZA [Suspect]
     Route: 041
     Dates: start: 20130325
  5. VIDAZA [Suspect]
     Route: 041
     Dates: start: 20130422
  6. VIDAZA [Suspect]
     Route: 041
     Dates: start: 20130528
  7. TRANSAMIN [Concomitant]
     Indication: PROPHYLAXIS
     Dosage: 1500 MILLIGRAM
     Route: 048
  8. EXJADE [Concomitant]
     Indication: IRON OVERLOAD
     Dosage: 1000 MILLIGRAM
     Route: 048
     Dates: start: 201212
  9. BAKTAR [Concomitant]
     Indication: PROPHYLAXIS
     Dosage: 500
     Route: 048
     Dates: start: 201212
  10. NEUTROGIN [Concomitant]
     Indication: PRODUCT USED FOR UNKNOWN INDICATION
     Route: 065
     Dates: start: 20130204, end: 20130217
  11. NEUTROGIN [Concomitant]
     Route: 065
     Dates: start: 20130405, end: 20130410
  12. NEUTROGIN [Concomitant]
     Route: 065
     Dates: start: 20130521, end: 20130527
  13. CANCIDAS [Concomitant]
     Indication: PRODUCT USED FOR UNKNOWN INDICATION
     Route: 065
     Dates: start: 20130405, end: 20130410
  14. ZOSYN [Concomitant]
     Indication: PRODUCT USED FOR UNKNOWN INDICATION
     Route: 065
     Dates: start: 20130405, end: 20130410
  15. MEROPEN [Concomitant]
     Indication: PRODUCT USED FOR UNKNOWN INDICATION
     Route: 065
     Dates: start: 20130521, end: 20130604
  16. AMIKACIN SULFATE [Concomitant]
     Indication: PRODUCT USED FOR UNKNOWN INDICATION
     Route: 065
     Dates: start: 20130523, end: 20130604

REACTIONS (9)
  - Myelodysplastic syndrome [Fatal]
  - Erythema multiforme [Recovered/Resolved]
  - Neutrophil count decreased [Recovering/Resolving]
  - Neutrophil count decreased [Recovering/Resolving]
  - Pneumonia [Recovering/Resolving]
  - Pneumonia [Recovered/Resolved]
  - Neutrophil count decreased [Recovering/Resolving]
  - Platelet count decreased [Unknown]
  - Haemoglobin decreased [Unknown]
